FAERS Safety Report 6627651-8 (Version None)
Quarter: 2010Q1

REPORT INFORMATION
  Report Type: 
  Country: None (occurrence: None)
  Receive Date: 20100311
  Receipt Date: 20100304
  Transmission Date: 20100710
  Serious: Yes (Hospitalization)
  Sender: FDA-Public Use
  Company Number: JP-BAYER-200914435BYL

PATIENT
  Age: 78 Year
  Sex: Male
  Weight: 45 kg

DRUGS (8)
  1. NEXAVAR [Suspect]
     Indication: RENAL CELL CARCINOMA
     Dosage: UNIT DOSE: 200 MG
     Route: 048
     Dates: start: 20081117, end: 20081207
  2. NEXAVAR [Suspect]
     Dosage: UNIT DOSE: 200 MG
     Route: 048
     Dates: start: 20081208
  3. NEXAVAR [Suspect]
     Dosage: UNIT DOSE: 200 MG
     Route: 048
     Dates: end: 20090402
  4. NEXAVAR [Suspect]
     Route: 048
  5. NEXAVAR [Suspect]
     Dosage: UNIT DOSE: 200 MG
     Route: 048
     Dates: start: 20090403
  6. FLIVAS OD [Concomitant]
     Route: 048
     Dates: start: 20070115
  7. BUP-4 [Concomitant]
     Route: 048
     Dates: start: 20070314
  8. ALOSENN [Concomitant]
     Route: 048
     Dates: start: 20070704

REACTIONS (7)
  - ATYPICAL MYCOBACTERIAL INFECTION [None]
  - DECREASED APPETITE [None]
  - DIARRHOEA [None]
  - HAEMATOLOGY TEST ABNORMAL [None]
  - HYPOTHYROIDISM [None]
  - INGUINAL HERNIA [None]
  - PALMAR-PLANTAR ERYTHRODYSAESTHESIA SYNDROME [None]
